FAERS Safety Report 17431896 (Version 1)
Quarter: 2020Q1

REPORT INFORMATION
  Report Type: Spontaneous
  Country: US (occurrence: US)
  Receive Date: 20200218
  Receipt Date: 20200218
  Transmission Date: 20200409
  Serious: Yes (Hospitalization)
  Sender: FDA-Public Use
  Company Number: US-TEVA-2020-US-1184413

PATIENT
  Age: 49 Year
  Sex: Female

DRUGS (1)
  1. PROAIR HFA [Suspect]
     Active Substance: ALBUTEROL SULFATE
     Dosage: DOSE: UNKNOWN DOSAGE
     Route: 065

REACTIONS (2)
  - Dyspnoea [Unknown]
  - Drug ineffective [Unknown]
